FAERS Safety Report 11632404 (Version 2)
Quarter: 2016Q1

REPORT INFORMATION
  Report Type: Other
  Country: US (occurrence: US)
  Receive Date: 20151015
  Receipt Date: 20160307
  Transmission Date: 20160525
  Serious: Yes (Death)
  Sender: FDA-Public Use
  Company Number: US-ACORDA-ACO_117955_2015

PATIENT
  Age: 67 Year
  Sex: Female

DRUGS (12)
  1. TRILEPTAL [Concomitant]
     Active Substance: OXCARBAZEPINE
     Indication: SYNCOPE
  2. LYRICA [Concomitant]
     Active Substance: PREGABALIN
     Indication: TREMOR
  3. REBIF [Concomitant]
     Active Substance: INTERFERON BETA-1A
     Indication: MULTIPLE SCLEROSIS
     Dosage: UNK
     Dates: start: 201509
  4. LYRICA [Concomitant]
     Active Substance: PREGABALIN
     Indication: SYNCOPE
  5. BACLOFEN. [Concomitant]
     Active Substance: BACLOFEN
     Indication: MUSCLE SPASMS
     Dosage: 10 MG, TID
     Route: 048
     Dates: start: 201506
  6. TRILEPTAL [Concomitant]
     Active Substance: OXCARBAZEPINE
     Indication: SEIZURE
     Dosage: 600 MG, BID
     Route: 048
     Dates: start: 201107
  7. AMPYRA [Suspect]
     Active Substance: DALFAMPRIDINE
     Indication: MULTIPLE SCLEROSIS
     Dosage: 10 MG, BID
     Route: 048
     Dates: start: 20140819, end: 20141118
  8. TRILEPTAL [Concomitant]
     Active Substance: OXCARBAZEPINE
     Indication: TREMOR
  9. OXTELLAR [Concomitant]
     Indication: SEIZURE
  10. LYRICA [Concomitant]
     Active Substance: PREGABALIN
     Indication: SEIZURE
     Dosage: 20 MG, TID
     Route: 048
  11. LYRICA [Concomitant]
     Active Substance: PREGABALIN
     Indication: PAIN
  12. COPAXONE [Concomitant]
     Active Substance: GLATIRAMER ACETATE
     Indication: MULTIPLE SCLEROSIS
     Dosage: UNK
     Dates: start: 201308, end: 201509

REACTIONS (4)
  - Contraindicated drug administered [Unknown]
  - Death [Fatal]
  - Multiple sclerosis [Unknown]
  - Insomnia [Unknown]

NARRATIVE: CASE EVENT DATE: 201503
